FAERS Safety Report 13415850 (Version 1)
Quarter: 2017Q2

REPORT INFORMATION
  Report Type: Spontaneous
  Country: US (occurrence: US)
  Receive Date: 20170407
  Receipt Date: 20170407
  Transmission Date: 20170830
  Serious: Yes (Life-Threatening, Hospitalization)
  Sender: FDA-Public Use
  Company Number: US-SA-2017SA058774

PATIENT
  Age: 31 Year
  Sex: Male

DRUGS (3)
  1. SOLOSTAR [Concomitant]
     Active Substance: DEVICE
     Indication: TYPE 1 DIABETES MELLITUS
  2. LANTUS [Concomitant]
     Active Substance: INSULIN GLARGINE
  3. LANTUS SOLOSTAR [Suspect]
     Active Substance: INSULIN GLARGINE
     Indication: TYPE 1 DIABETES MELLITUS
     Dosage: SOME PENS HAVE EXPIRY DATE 31-JUL-16, REPORTEDLY NOT CONFIRMED IF USED. DOSE:40 UNIT(S)
     Route: 065

REACTIONS (7)
  - Localised infection [Unknown]
  - Balance disorder [Unknown]
  - Blister [Unknown]
  - Peripheral swelling [Unknown]
  - Pain in extremity [Unknown]
  - Hyperglycaemia [Unknown]
  - Visual impairment [Unknown]

NARRATIVE: CASE EVENT DATE: 201703
